FAERS Safety Report 24926348 (Version 1)
Quarter: 2025Q1

REPORT INFORMATION
  Report Type: Spontaneous
  Country: NL (occurrence: NL)
  Receive Date: 20250205
  Receipt Date: 20250205
  Transmission Date: 20250408
  Serious: Yes (Other)
  Sender: AUROBINDO
  Company Number: NL-LRB-01027253

PATIENT
  Age: 25 Year
  Sex: Female
  Weight: 53 kg

DRUGS (18)
  1. IBUPROFEN [Suspect]
     Active Substance: IBUPROFEN
     Indication: Pain
     Dosage: 400 MILLIGRAM, ONCE A DAY(JANUARI TM MEI 1DD1, MEI TM DEC 3DD1)
     Route: 048
     Dates: start: 20240118, end: 2024
  2. IBUPROFEN [Suspect]
     Active Substance: IBUPROFEN
     Dosage: 400 MILLIGRAM, MEI TM DEC 3DD1
     Route: 048
     Dates: start: 202405, end: 20241221
  3. BUPRENORPHINE [Concomitant]
     Active Substance: BUPRENORPHINE
     Indication: Product use in unapproved indication
     Route: 062
     Dates: start: 202412
  4. MORPHINE [Concomitant]
     Active Substance: MORPHINE
     Indication: Product use in unapproved indication
     Route: 065
     Dates: end: 20241001
  5. ACETAMINOPHEN [Concomitant]
     Active Substance: ACETAMINOPHEN
     Indication: Product use in unapproved indication
     Route: 048
  6. OMEPRAZOLE [Concomitant]
     Active Substance: OMEPRAZOLE
     Indication: Product use in unapproved indication
     Route: 048
  7. POLYETHYLENE GLYCOLS [Concomitant]
     Active Substance: POLYETHYLENE GLYCOLS
     Indication: Product use in unapproved indication
     Route: 048
  8. CICLESONIDE [Concomitant]
     Active Substance: CICLESONIDE
     Indication: Product use in unapproved indication
  9. FORMOTEROL [Concomitant]
     Active Substance: FORMOTEROL
     Indication: Product use in unapproved indication
  10. AZITHROMYCIN ANHYDROUS [Concomitant]
     Active Substance: AZITHROMYCIN ANHYDROUS
     Indication: Product use in unapproved indication
     Route: 048
  11. DESLORATADINE [Concomitant]
     Active Substance: DESLORATADINE
     Indication: Product use in unapproved indication
     Route: 048
  12. AZELASTINE. [Concomitant]
     Active Substance: AZELASTINE HYDROCHLORIDE
     Indication: Product use in unapproved indication
     Route: 045
  13. ALBUTEROL [Concomitant]
     Active Substance: ALBUTEROL
     Indication: Product use in unapproved indication
  14. Salbutamol hemisuccinate [Concomitant]
     Indication: Product use in unapproved indication
  15. VITAMIN K [Concomitant]
     Active Substance: PHYTONADIONE
     Indication: Product use in unapproved indication
     Route: 048
  16. STAMARIL [Concomitant]
     Active Substance: YELLOW FEVER VIRUS STRAIN 17D-204 LIVE ANTIGEN
     Indication: Product use in unapproved indication
     Route: 065
  17. MENINGOKOKKEN-IMPFSTOFF A+C [Concomitant]
     Indication: Product use in unapproved indication
     Route: 065
  18. PREDNISONE [Concomitant]
     Active Substance: PREDNISONE
     Indication: Product use in unapproved indication
     Route: 048

REACTIONS (1)
  - Aplastic anaemia [Unknown]
